FAERS Safety Report 18870259 (Version 1)
Quarter: 2021Q1

REPORT INFORMATION
  Report Type: Spontaneous
  Country: TH (occurrence: TH)
  Receive Date: 20210210
  Receipt Date: 20210210
  Transmission Date: 20210420
  Serious: Yes (Other)
  Sender: FDA-Public Use
  Company Number: TH-SUN PHARMACEUTICAL INDUSTRIES LTD-2021R1-279760

PATIENT
  Age: 40 Year
  Sex: Male

DRUGS (2)
  1. SALBUTAMOL [Suspect]
     Active Substance: ALBUTEROL
     Indication: STATUS ASTHMATICUS
     Dosage: 100 MICROGRAM , 4?8 PUFFS EVERY 15?30 MIN
  2. SALBUTAMOL [Suspect]
     Active Substance: ALBUTEROL
     Dosage: 31500 MICROGRAM , UNK

REACTIONS (2)
  - Toxicity to various agents [Unknown]
  - Lactic acidosis [Recovered/Resolved]
